FAERS Safety Report 13645222 (Version 1)
Quarter: 2017Q2

REPORT INFORMATION
  Report Type: Spontaneous
  Country: US (occurrence: US)
  Receive Date: 20170612
  Receipt Date: 20170612
  Transmission Date: 20170830
  Serious: No
  Sender: FDA-Public Use
  Company Number: US-ROCHE-1335067

PATIENT
  Sex: Female

DRUGS (8)
  1. XELODA [Suspect]
     Active Substance: CAPECITABINE
     Route: 048
     Dates: start: 20130223
  2. XELODA [Suspect]
     Active Substance: CAPECITABINE
     Indication: BREAST CANCER FEMALE
     Dosage: 3 TABS AM 2 TABS PM, 14 DAYS ON 7 OFF
     Route: 048
     Dates: start: 20121007
  3. XELODA [Suspect]
     Active Substance: CAPECITABINE
     Route: 048
     Dates: start: 20130223
  4. XELODA [Suspect]
     Active Substance: CAPECITABINE
     Dosage: EVERY EVENING 14 DAYS ON 7 OFF
     Route: 048
     Dates: start: 20121009
  5. SERTRALINE [Concomitant]
     Active Substance: SERTRALINE HYDROCHLORIDE
  6. FELODIPINE. [Concomitant]
     Active Substance: FELODIPINE
  7. XELODA [Suspect]
     Active Substance: CAPECITABINE
     Dosage: EVERY MORNING 14 DAYS ON 7 OFF
     Route: 048
     Dates: start: 20121009
  8. LIPITOR [Concomitant]
     Active Substance: ATORVASTATIN CALCIUM

REACTIONS (4)
  - Palmar-plantar erythrodysaesthesia syndrome [Unknown]
  - Dry skin [Not Recovered/Not Resolved]
  - Skin exfoliation [Not Recovered/Not Resolved]
  - Skin burning sensation [Not Recovered/Not Resolved]
